FAERS Safety Report 15286730 (Version 1)
Quarter: 2018Q3

REPORT INFORMATION
  Report Type: Spontaneous
  Country: US (occurrence: US)
  Receive Date: 20180816
  Receipt Date: 20180816
  Transmission Date: 20181010
  Serious: No
  Sender: FDA-Public Use
  Company Number: US-AMGEN-USASP2018082564

PATIENT
  Age: 55 Year
  Sex: Female
  Weight: 42 kg

DRUGS (3)
  1. PARSABIV [Suspect]
     Active Substance: ETELCALCETIDE HYDROCHLORIDE
     Dosage: 5 MG, 3 TIMES/WK
     Route: 042
     Dates: start: 20180629
  2. HECTOROL [Concomitant]
     Active Substance: DOXERCALCIFEROL
     Dosage: 4 MG, UNK
     Dates: start: 20171011
  3. PARSABIV [Suspect]
     Active Substance: ETELCALCETIDE HYDROCHLORIDE
     Indication: HYPERPARATHYROIDISM SECONDARY
     Dosage: 10 MG, 3 TIMES/WK
     Route: 042
     Dates: start: 20180408, end: 20180606

REACTIONS (2)
  - Overdose [Unknown]
  - Hypocalcaemia [Recovered/Resolved]

NARRATIVE: CASE EVENT DATE: 20180408
